FAERS Safety Report 6435320-2 (Version None)
Quarter: 2009Q4

REPORT INFORMATION
  Report Type: 
  Country: None (occurrence: None)
  Receive Date: 20091106
  Receipt Date: 20091021
  Transmission Date: 20100525
  Serious: No
  Sender: FDA-Public Use
  Company Number: F03200900124

PATIENT
  Age: 62 Year
  Sex: Female

DRUGS (11)
  1. OFORTA     (FUDARABINE PHOSPHATE) - [Suspect]
     Indication: LYMPHOPLASMACYTOID LYMPHOMA/IMMUNOCYTOMA STAGE IV
     Dosage: 40 MG QD ORAL
     Route: 048
     Dates: start: 20090120, end: 20090124
  2. PREDNISOLONE [Concomitant]
  3. LASIX [Concomitant]
  4. OMEPRAZOLE [Concomitant]
  5. ALLOPURINOL [Concomitant]
  6. URSODIOL [Concomitant]
  7. RITUXIMAB (RITUXIMAB) [Concomitant]
  8. CYCLOPHOSPHAMIDE [Concomitant]
  9. DOXORUBUCIN (DOXORUBICIN) [Concomitant]
  10. VINCRISTINE [Concomitant]
  11. PREDNISOLONE [Concomitant]

REACTIONS (2)
  - HEPATIC FUNCTION ABNORMAL [None]
  - HEPATITIS C RNA INCREASED [None]
